FAERS Safety Report 13900111 (Version 1)
Quarter: 2017Q3

REPORT INFORMATION
  Report Type: Report from Study
  Country: CA (occurrence: CA)
  Receive Date: 20170823
  Receipt Date: 20170823
  Transmission Date: 20171127
  Serious: Yes (Other)
  Sender: FDA-Public Use
  Company Number: CA-HLSUS-2017-CA-000900

PATIENT
  Age: 43 Year
  Sex: Female

DRUGS (17)
  1. CLOZARIL [Suspect]
     Active Substance: CLOZAPINE
     Route: 048
     Dates: start: 19990809, end: 20110930
  2. LIVOSTIN NASAL SPRAY [Concomitant]
     Active Substance: LEVOCABASTINE HYDROCHLORIDE
     Dosage: 2 SPRAYS PER NOSTRIL BID
  3. APO-AMITRIPTYLINE [Concomitant]
     Active Substance: AMITRIPTYLINE HYDROCHLORIDE
     Dosage: 10MG((1TAB IN THE MORNING + 3TABS AT BEDTIME)
  4. MINT-TOPIRAMATE [Concomitant]
     Active Substance: TOPIRAMATE
     Dosage: 2 TABLETS BID
  5. ISOPTO ATROPINE [Concomitant]
     Active Substance: ATROPINE SULFATE
     Indication: DROOLING
     Dosage: 5 DROPS UNDER TONGUE DAILY
     Route: 048
  6. APO-OXYBUTININ [Concomitant]
     Dosage: 1 TABLET BID
  7. DOGMATIL [Concomitant]
     Active Substance: SULPIRIDE
     Dosage: 400MG X 2 DAILY
  8. SIVEM-SERTRALINE [Concomitant]
     Dosage: 100MG X 2 OD
  9. ATROVENT [Concomitant]
     Active Substance: IPRATROPIUM BROMIDE
     Dosage: 1 SPRAY X 4 DAILY
  10. MAGNESIUM [Concomitant]
     Active Substance: MAGNESIUM
     Dosage: 50MG X 4 DAILY
  11. BETADERM CREAM [Concomitant]
     Dosage: 1-3 APPLICATIONS ON AFFECTED SITES ONCE DAILY
  12. DDAVP [Concomitant]
     Active Substance: DESMOPRESSIN ACETATE
     Dosage: 2 SPRAYS INTRANASALY DAILY AT BED TIME
  13. APO-BECLOMETHASONE AQUEOUS NASAL [Concomitant]
     Dosage: 4 SPRAYS PER NOSTRIL DAILY AS DIRECTED
  14. SIVEM-LEVATIRACETAM [Concomitant]
     Dosage: 750MG AT NOON + 1000MG AT BEDTIME
  15. ATROVENT HFA [Concomitant]
     Active Substance: IPRATROPIUM BROMIDE
     Dosage: INHALE 2 SPRAYS X 4 DAILY
  16. MINT-ZOPICLONE [Concomitant]
     Dosage: 0.5-1 TAB Q HS PRN
  17. PMS-CLONAZEPAM [Concomitant]
     Active Substance: CLONAZEPAM
     Dosage: 0.25MG X 3 OD(MORNING, AFTERNOON AND EVENING)(NOON DOSE IN VIAL)

REACTIONS (4)
  - Electrocardiogram QT prolonged [Unknown]
  - Atrioventricular block first degree [Unknown]
  - Sinus tachycardia [Unknown]
  - Electrocardiogram T wave abnormal [Unknown]

NARRATIVE: CASE EVENT DATE: 20170112
